FAERS Safety Report 8810934 (Version 1)
Quarter: 2012Q4

REPORT INFORMATION
  Report Type: 
  Country: US (occurrence: US)
  Receive Date: 20120927
  Receipt Date: 20120927
  Transmission Date: 20130627
  Serious: Yes (Hospitalization)
  Sender: FDA-Public Use
  Company Number: US-SANOFI-AVENTIS-2012SA068497

PATIENT
  Sex: Male

DRUGS (2)
  1. LANTUS [Suspect]
     Indication: DIABETES
     Dosage: 14 Units AM and 4 units in PM
     Route: 058
     Dates: start: 2009
  2. SOLOSTAR [Suspect]
     Indication: DIABETES
     Dates: start: 2009

REACTIONS (5)
  - Chest pain [Unknown]
  - Abdominal pain [Not Recovered/Not Resolved]
  - Nausea [Not Recovered/Not Resolved]
  - Abdominal discomfort [Not Recovered/Not Resolved]
  - Feeling of body temperature change [Not Recovered/Not Resolved]
